FAERS Safety Report 18962406 (Version 1)
Quarter: 2021Q1

REPORT INFORMATION
  Report Type: Report from Study
  Country: ES (occurrence: ES)
  Receive Date: 20210303
  Receipt Date: 20210303
  Transmission Date: 20210420
  Serious: Yes (Other)
  Sender: FDA-Public Use
  Company Number: ES-MYLANLABS-2021M1012222

PATIENT

DRUGS (12)
  1. TOBRAMYCIN. [Concomitant]
     Active Substance: TOBRAMYCIN
     Indication: PRODUCT USED FOR UNKNOWN INDICATION
     Dosage: UNK UNK, CYCLE
     Route: 031
  2. CARBOPLATIN. [Concomitant]
     Active Substance: CARBOPLATIN
     Indication: VITREOUS DISORDER
  3. MELPHALAN. [Suspect]
     Active Substance: MELPHALAN
     Indication: RETINOBLASTOMA
     Dosage: 0.09ML(30 MCG) WAS INJECTED INTO THE VITREOUS
  4. POVIDONE?IODINE. [Concomitant]
     Active Substance: POVIDONE-IODINE
     Indication: INFECTION PROPHYLAXIS
     Dosage: UNK, CYCLE
     Route: 065
  5. MELPHALAN. [Suspect]
     Active Substance: MELPHALAN
     Indication: VITREOUS DISORDER
  6. VINCRISTINE [Concomitant]
     Active Substance: VINCRISTINE
     Indication: VITREOUS DISORDER
  7. ETOPOSIDE. [Concomitant]
     Active Substance: ETOPOSIDE
     Indication: VITREOUS DISORDER
  8. SALINE                             /00075401/ [Concomitant]
     Active Substance: SODIUM CHLORIDE
     Indication: VEHICLE SOLUTION USE
     Dosage: 0.3 MILLILITER, CYCLE
  9. VINCRISTINE [Concomitant]
     Active Substance: VINCRISTINE
     Indication: RETINOBLASTOMA
     Dosage: UNK, CYCLE SYSTEMIC CHEMOTHERAPY
     Route: 065
  10. DEXAMETHASONE. [Concomitant]
     Active Substance: DEXAMETHASONE
     Indication: PRODUCT USED FOR UNKNOWN INDICATION
     Dosage: UNK UNK, CYCLE
     Route: 065
  11. ETOPOSIDE. [Concomitant]
     Active Substance: ETOPOSIDE
     Indication: RETINOBLASTOMA
     Dosage: 3.3 MILLIGRAM/KILOGRAM, CYCLE SYSTEMIC CHEMOTHERAPY; ETOPOSIDE ON DAY...
     Route: 065
  12. CARBOPLATIN. [Concomitant]
     Active Substance: CARBOPLATIN
     Indication: RETINOBLASTOMA
     Dosage: 333.3 MILLIGRAM/SQ. METER, CYCLE SYSTEMIC CHEMOTHERAPY...
     Route: 065

REACTIONS (3)
  - Acquired pigmented retinopathy [Unknown]
  - Administration site scar [Unknown]
  - Off label use [Unknown]
